FAERS Safety Report 17952423 (Version 1)
Quarter: 2020Q2

REPORT INFORMATION
  Report Type: Spontaneous
  Country: TW (occurrence: TW)
  Receive Date: 20200626
  Receipt Date: 20200626
  Transmission Date: 20200714
  Serious: Yes (Death, Other)
  Sender: FDA-Public Use
  Company Number: TW-GLAXOSMITHKLINE-TW2020GSK106779

PATIENT
  Age: 63 Year
  Sex: Male

DRUGS (2)
  1. ACYCLOVIR. [Suspect]
     Active Substance: ACYCLOVIR
     Indication: VARICELLA ZOSTER VIRUS INFECTION
     Dosage: UNK UNK, BID
     Route: 061
  2. ACYCLOVIR. [Suspect]
     Active Substance: ACYCLOVIR
     Indication: SKIN LESION

REACTIONS (4)
  - Pneumonia [Unknown]
  - Renal impairment [Unknown]
  - Drug ineffective [Unknown]
  - Death [Fatal]
